FAERS Safety Report 12766857 (Version 3)
Quarter: 2016Q4

REPORT INFORMATION
  Report Type: Spontaneous
  Country: US (occurrence: US)
  Receive Date: 20160921
  Receipt Date: 20161219
  Transmission Date: 20170207
  Serious: Yes (Other)
  Sender: FDA-Public Use
  Company Number: US-BAYER-2016-182700

PATIENT
  Age: 29 Year
  Sex: Female
  Weight: 77.98 kg

DRUGS (4)
  1. MIRENA [Suspect]
     Active Substance: LEVONORGESTREL
  2. MIRENA [Suspect]
     Active Substance: LEVONORGESTREL
     Indication: MENORRHAGIA
  3. MIRENA [Suspect]
     Active Substance: LEVONORGESTREL
     Indication: CONTRACEPTION
     Dosage: 20 MCG/24HR, CONT
     Route: 015
     Dates: start: 20090903, end: 20140530
  4. IBUPROFEN [IBUPROFEN] [Concomitant]
     Active Substance: IBUPROFEN
     Indication: PAIN

REACTIONS (4)
  - Uterine perforation [Not Recovered/Not Resolved]
  - Device breakage [None]
  - Device issue [None]
  - Pain [Not Recovered/Not Resolved]

NARRATIVE: CASE EVENT DATE: 2014
